FAERS Safety Report 7277779-7 (Version None)
Quarter: 2011Q1

REPORT INFORMATION
  Report Type: 
  Country: None (occurrence: None)
  Receive Date: 20110207
  Receipt Date: 20100831
  Transmission Date: 20110831
  Serious: Yes (Other)
  Sender: FDA-Public Use
  Company Number: A0878672A

PATIENT
  Sex: Male

DRUGS (1)
  1. OLUX E [Suspect]
     Indication: DERMATOSIS
     Dosage: 1APP TWICE PER DAY
     Route: 061
     Dates: start: 20100501, end: 20100701

REACTIONS (1)
  - CUSHING'S SYNDROME [None]
